FAERS Safety Report 6014325-X (Version None)
Quarter: 2008Q4

REPORT INFORMATION
  Report Type: 
  Country: None (occurrence: None)
  Receive Date: 20081219
  Receipt Date: 20080411
  Transmission Date: 20090506
  Serious: No
  Sender: FDA-Public Use
  Company Number: A0722990A

PATIENT
  Age: 67 Year
  Sex: Male
  Weight: 65.5 kg

DRUGS (1)
  1. AVODART [Suspect]
     Dosage: 1CAP PER DAY
     Route: 048
     Dates: start: 20070901, end: 20071201

REACTIONS (3)
  - BREAST HYPERPLASIA [None]
  - BREAST PAIN [None]
  - DRUG INEFFECTIVE [None]
